FAERS Safety Report 7327475-2 (Version None)
Quarter: 2011Q1

REPORT INFORMATION
  Report Type: 
  Country: None (occurrence: None)
  Receive Date: 20110303
  Receipt Date: 20110222
  Transmission Date: 20110831
  Serious: Yes (Other)
  Sender: FDA-Public Use
  Company Number: US-BIOGENIDEC-2010BI026570

PATIENT
  Age: 46 Year
  Sex: Female

DRUGS (1)
  1. TYSABRI [Suspect]
     Indication: MULTIPLE SCLEROSIS
     Route: 042
     Dates: start: 20090406

REACTIONS (5)
  - WHITE BLOOD CELL COUNT INCREASED [None]
  - STRESS [None]
  - EYE HAEMORRHAGE [None]
  - RETINAL TEAR [None]
  - MIGRAINE [None]
